FAERS Safety Report 16697205 (Version 3)
Quarter: 2020Q3

REPORT INFORMATION
  Report Type: Spontaneous
  Country: US (occurrence: US)
  Receive Date: 20190813
  Receipt Date: 20190926
  Transmission Date: 20201104
  Serious: No
  Sender: FDA-Public Use
  Company Number: US-PFIZER INC-2019343442

PATIENT
  Age: 73 Year
  Sex: Female

DRUGS (5)
  1. AMOXICILLIN. [Suspect]
     Active Substance: AMOXICILLIN
     Dosage: UNK
  2. HYOSCYAMINE. [Suspect]
     Active Substance: HYOSCYAMINE
     Dosage: UNK
  3. POTASSIUM CHLORIDE. [Suspect]
     Active Substance: POTASSIUM CHLORIDE
     Dosage: UNK
  4. FLUCONAZOLE. [Suspect]
     Active Substance: FLUCONAZOLE
     Dosage: UNK
  5. ZITHROMAX [Suspect]
     Active Substance: AZITHROMYCIN DIHYDRATE
     Dosage: UNK

REACTIONS (1)
  - Drug hypersensitivity [Unknown]
